FAERS Safety Report 9321216 (Version 1)
Quarter: 2013Q2

REPORT INFORMATION
  Report Type: Spontaneous
  Country: GB (occurrence: None)
  Receive Date: 20130528
  Receipt Date: 20130528
  Transmission Date: 20140414
  Serious: Yes (Other)
  Sender: FDA-Public Use
  Company Number: 2013P1006365

PATIENT
  Age: 80 Year
  Sex: Male

DRUGS (3)
  1. DIGOXIN [Suspect]
     Indication: ATRIAL FIBRILLATION
  2. PERINDOPRIL [Concomitant]
  3. WARFARIN SODIUM [Concomitant]

REACTIONS (2)
  - Gynaecomastia [None]
  - Pain [None]
